FAERS Safety Report 26108341 (Version 1)
Quarter: 2025Q4

REPORT INFORMATION
  Report Type: Spontaneous
  Country: US (occurrence: US)
  Receive Date: 20251201
  Receipt Date: 20251201
  Transmission Date: 20260118
  Serious: Yes (Hospitalization)
  Sender: TEVA
  Company Number: US-TEVA-VS-3397103

PATIENT
  Sex: Male

DRUGS (2)
  1. UZEDY [Suspect]
     Active Substance: RISPERIDONE
     Indication: Psychotic disorder
     Dosage: (SINGLE DOSE)
     Route: 065
     Dates: start: 20251031
  2. SEROQUEL [Suspect]
     Active Substance: QUETIAPINE FUMARATE
     Indication: Product used for unknown indication
     Route: 065

REACTIONS (7)
  - Electrocardiogram ST segment elevation [Recovered/Resolved]
  - Agitation [Recovered/Resolved]
  - Incorrect route of product administration [Unknown]
  - Panic attack [Unknown]
  - Product dispensing error [Unknown]
  - Troponin increased [Recovered/Resolved]
  - Electrocardiogram QT prolonged [Recovered/Resolved]

NARRATIVE: CASE EVENT DATE: 20251115
